FAERS Safety Report 11793904 (Version 1)
Quarter: 2015Q4

REPORT INFORMATION
  Report Type: Spontaneous
  Country: US (occurrence: None)
  Receive Date: 20151201
  Receipt Date: 20151201
  Transmission Date: 20160305
  Serious: No
  Sender: FDA-Public Use
  Company Number: None

PATIENT
  Age: 77 Year
  Sex: Female
  Weight: 72.58 kg

DRUGS (10)
  1. LOVAZA [Concomitant]
     Active Substance: OMEGA-3-ACID ETHYL ESTERS
  2. NORVASC [Concomitant]
     Active Substance: AMLODIPINE BESYLATE
  3. LISINOPRIL HDZD [Concomitant]
  4. KERYDIN [Suspect]
     Active Substance: TAVABOROLE
     Indication: ONYCHOMYCOSIS
     Dosage: APPLY 2 DROPS DAILY?ONCE DAILY?FEW WEEKS
  5. POTASSIUM [Concomitant]
     Active Substance: POTASSIUM
  6. CALCIUM W/D [Concomitant]
  7. BABY ASPIRIN [Concomitant]
     Active Substance: ASPIRIN
  8. RATADINE [Concomitant]
  9. MULTIVITAMIN/MULTIMINERAL [Concomitant]
     Active Substance: MINERALS\VITAMINS
  10. LIPITOR [Concomitant]
     Active Substance: ATORVASTATIN CALCIUM

REACTIONS (1)
  - Nail discolouration [None]

NARRATIVE: CASE EVENT DATE: 20151116
